FAERS Safety Report 24010891 (Version 1)
Quarter: 2024Q2

REPORT INFORMATION
  Report Type: Spontaneous
  Country: US (occurrence: None)
  Receive Date: 20240624
  Receipt Date: 20240624
  Transmission Date: 20240716
  Serious: Yes (Other)
  Sender: FDA-Public Use
  Company Number: None

PATIENT
  Age: 88 Year
  Sex: Female
  Weight: 46 kg

DRUGS (1)
  1. VANCOMYCIN [Suspect]
     Active Substance: VANCOMYCIN
     Indication: Bacteraemia
     Dosage: 750 UG ONCE INTRAVENOUS DRIP?
     Route: 041
     Dates: start: 20240614, end: 20240614

REACTIONS (6)
  - Dialysis [None]
  - Dyspnoea [None]
  - Pruritus [None]
  - Pruritus [None]
  - Hypoaesthesia [None]
  - Therapy cessation [None]

NARRATIVE: CASE EVENT DATE: 20240614
